FAERS Safety Report 15661256 (Version 1)
Quarter: 2018Q4

REPORT INFORMATION
  Report Type: Spontaneous
  Country: FR (occurrence: FR)
  Receive Date: 20181127
  Receipt Date: 20181127
  Transmission Date: 20190205
  Serious: Yes (Other)
  Sender: FDA-Public Use
  Company Number: FR-PROVELL PHARMACEUTICALS-2059299

PATIENT
  Age: 75 Year
  Sex: Female

DRUGS (8)
  1. EUTHYROX [Suspect]
     Active Substance: LEVOTHYROXINE SODIUM
     Dates: start: 201811, end: 201811
  2. CORDARONE [Concomitant]
     Active Substance: AMIODARONE HYDROCHLORIDE
  3. PREVISCAN (FLUINDIONE) [Suspect]
     Active Substance: FLUINDIONE
     Dates: start: 2011
  4. LIPANTHYL [Concomitant]
     Active Substance: FENOFIBRATE
  5. EXFORGE [Concomitant]
     Active Substance: AMLODIPINE BESYLATE\VALSARTAN
  6. INEXIUM [Concomitant]
     Active Substance: ESOMEPRAZOLE
  7. PIASCLEDINE [Concomitant]
     Active Substance: AVOCADO OIL\SOYBEAN OIL
  8. EUTHYROX [Suspect]
     Active Substance: LEVOTHYROXINE SODIUM
     Indication: HYPOTHYROIDISM
     Dates: start: 201810, end: 20181114

REACTIONS (9)
  - Tremor [None]
  - Respiration abnormal [Recovering/Resolving]
  - Paraesthesia [None]
  - Faeces soft [None]
  - Fatigue [Recovering/Resolving]
  - Skin fissures [None]
  - Wound [None]
  - Pruritus [None]
  - Haematochezia [Recovered/Resolved]

NARRATIVE: CASE EVENT DATE: 2018
